FAERS Safety Report 8896667 (Version 1)
Quarter: 2012Q4

REPORT INFORMATION
  Report Type: 
  Country: US (occurrence: US)
  Receive Date: 20121108
  Receipt Date: 20121108
  Transmission Date: 20130627
  Serious: No
  Sender: FDA-Public Use
  Company Number: US-AMGEN-USASP2012026717

PATIENT
  Age: 74 Year
  Sex: Female

DRUGS (5)
  1. ENBREL [Suspect]
     Indication: PRODUCT USED FOR UNKNOWN INDICATION
     Dosage: 25 mg, 2 times/wk
     Route: 058
  2. VITAMIN D                          /00318501/ [Concomitant]
     Dosage: 50000 IU, UNK
  3. BEANO [Concomitant]
     Dosage: UNK
  4. FOLIC ACID [Concomitant]
     Dosage: UNK
  5. CITRACAL + D                       /01438101/ [Concomitant]
     Dosage: UNK

REACTIONS (1)
  - Injection site bruising [Unknown]
